FAERS Safety Report 24931959 (Version 1)
Quarter: 2025Q1

REPORT INFORMATION
  Report Type: Report from Study
  Country: US (occurrence: US)
  Receive Date: 20250205
  Receipt Date: 20250205
  Transmission Date: 20250408
  Serious: No
  Sender: EXELIXIS
  Company Number: US-EXELIXIS-CABO-24079318

PATIENT
  Sex: Female
  Weight: 50.794 kg

DRUGS (10)
  1. CABOMETYX [Suspect]
     Active Substance: CABOZANTINIB S-MALATE
     Indication: Leiomyosarcoma
     Dosage: 60 MG, QD
     Dates: start: 20240620
  2. FUROSEMIDE [Concomitant]
     Active Substance: FUROSEMIDE
  3. JARDIANCE [Concomitant]
     Active Substance: EMPAGLIFLOZIN
  4. COREG [Concomitant]
     Active Substance: CARVEDILOL
  5. GABAPENTIN [Concomitant]
     Active Substance: GABAPENTIN
  6. ONDANSETRON [Concomitant]
     Active Substance: ONDANSETRON
  7. LIDOCAINE AND PRILOCAINE [Concomitant]
     Active Substance: LIDOCAINE\PRILOCAINE
  8. POTASSIUM CHLORIDE [Concomitant]
     Active Substance: POTASSIUM CHLORIDE
  9. PROCHLORPERAZINE [Concomitant]
     Active Substance: PROCHLORPERAZINE
  10. TRAZODONE [Concomitant]
     Active Substance: TRAZODONE HYDROCHLORIDE

REACTIONS (7)
  - Pain in extremity [Unknown]
  - Fatigue [Unknown]
  - Dry skin [Unknown]
  - Pruritus [Unknown]
  - Paraesthesia [Unknown]
  - Dry mouth [Unknown]
  - Off label use [Unknown]
